FAERS Safety Report 21300987 (Version 1)
Quarter: 2022Q3

REPORT INFORMATION
  Report Type: Spontaneous
  Country: US (occurrence: None)
  Receive Date: 20220907
  Receipt Date: 20220907
  Transmission Date: 20221027
  Serious: No
  Sender: FDA-Public Use
  Company Number: 2022A307158

PATIENT
  Age: 70 Year
  Sex: Female

DRUGS (19)
  1. BUDESONIDE [Suspect]
     Active Substance: BUDESONIDE
     Route: 065
  2. PRILOSEC [Suspect]
     Active Substance: OMEPRAZOLE MAGNESIUM
     Route: 048
  3. VERSED [Concomitant]
     Active Substance: MIDAZOLAM HYDROCHLORIDE
     Dosage: 5 MG/ML SOLUTION
     Route: 065
  4. RELPAX [Concomitant]
     Active Substance: ELETRIPTAN HYDROBROMIDE
     Dosage: 40 MC
     Route: 048
  5. DECADRON [Concomitant]
     Active Substance: DEXAMETHASONE
     Dosage: (0.1 MG/ML) 0.5 MG/5ML
     Route: 065
  6. SOLUTION [Concomitant]
     Active Substance: MINOXIDIL
  7. ONFI [Concomitant]
     Active Substance: CLOBAZAM
     Route: 048
  8. ZOFRAN ODT [Concomitant]
     Active Substance: ONDANSETRON HYDROCHLORIDE
     Route: 048
  9. CREON [Concomitant]
     Active Substance: PANCRELIPASE AMYLASE\PANCRELIPASE LIPASE\PANCRELIPASE PROTEASE
     Dosage: 36000-114000 UNITS
     Route: 065
  10. TYMLOS [Concomitant]
     Active Substance: ABALOPARATIDE
     Dosage: 3120 MCG/1.56ML SOLUTION PEN
     Route: 065
  11. EPIPEN [Concomitant]
     Active Substance: EPINEPHRINE
     Dosage: 0.3 MG/O.3 ML SOLUTION
     Route: 065
  12. SYNTHROID [Concomitant]
     Active Substance: LEVOTHYROXINE SODIUM
     Route: 048
  13. ALLEGRA OR [Concomitant]
  14. MAXIVATE [Concomitant]
     Dosage: 0.05 % CREAM
     Route: 003
  15. WLENOL [Concomitant]
     Route: 048
  16. TUMS [Concomitant]
     Active Substance: CALCIUM CARBONATE
     Route: 048
  17. ESTRING [Concomitant]
     Active Substance: ESTRADIOL
     Dosage: 2 MG RING
     Route: 065
  18. PYRIDOXINE [Concomitant]
     Active Substance: PYRIDOXINE
     Route: 048
  19. CHOLECALCIFEROL [Concomitant]
     Active Substance: CHOLECALCIFEROL
     Dosage: 5000 UNITS CAPS
     Route: 048

REACTIONS (6)
  - Rash [Recovered/Resolved]
  - Urticaria [Unknown]
  - Insomnia [Unknown]
  - Hypersensitivity [Unknown]
  - Proteinuria [Unknown]
  - Dysphagia [Unknown]
